FAERS Safety Report 8610714-5 (Version None)
Quarter: 2012Q3

REPORT INFORMATION
  Report Type: 
  Country: None (occurrence: None)
  Receive Date: 20120808
  Receipt Date: 20120724
  Transmission Date: 20120928
  Serious: Yes (Other)
  Sender: FDA-Public Use
  Company Number: FK201202177

PATIENT
  Age: 84 Year
  Sex: Female
  Weight: 81 kg

DRUGS (6)
  1. ANASTRAZOLE [Suspect]
     Indication: BREAST CANCER
     Dosage: 1 MG, ORAL
     Route: 048
     Dates: start: 20120621, end: 20120626
  2. CITALOPRAM HYDROBROMIDE [Concomitant]
  3. VALSARTAN [Concomitant]
  4. LACTULOSE [Concomitant]
  5. LANSOPRAZOLE [Concomitant]
  6. SENNA-MINT WAF [Concomitant]

REACTIONS (1)
  - HALLUCINATION, VISUAL [None]
